FAERS Safety Report 6878179-1 (Version None)
Quarter: 2010Q3

REPORT INFORMATION
  Report Type: 
  Country: None (occurrence: None)
  Receive Date: 20100728
  Receipt Date: 20100715
  Transmission Date: 20110219
  Serious: Yes (Other)
  Sender: FDA-Public Use
  Company Number: GB-PFIZER INC-2010088879

PATIENT
  Age: 59 Year
  Sex: Female
  Weight: 42.3 kg

DRUGS (10)
  1. CHAMPIX [Suspect]
     Indication: SMOKING CESSATION THERAPY
     Dosage: 1 MG, 2X/DAY
     Dates: start: 20100314, end: 20100501
  2. ALENDRONIC ACID [Concomitant]
     Dosage: UNK
  3. BACLOFEN [Concomitant]
     Dosage: 10 MG, UNK
     Route: 048
  4. DOXYCYCLINE [Concomitant]
     Dosage: 50 MG, UNK
  5. GABAPENTIN [Concomitant]
     Dosage: UNK
     Route: 048
  6. METOCLOPRAMIDE [Concomitant]
     Dosage: UNK
  7. MORPHINE SULFATE [Concomitant]
     Dosage: UNK
  8. PANTOPRAZOLE [Concomitant]
     Dosage: 40 MG, UNK
     Route: 048
  9. PARACETAMOL [Concomitant]
     Dosage: UNK
     Route: 048
  10. PREDNISOLONE [Concomitant]
     Dosage: 5 MG, UNK
     Route: 048

REACTIONS (7)
  - ABNORMAL DREAMS [None]
  - DEPRESSED MOOD [None]
  - FEELING OF DESPAIR [None]
  - NAUSEA [None]
  - PSYCHIATRIC SYMPTOM [None]
  - SLEEP DISORDER [None]
  - WITHDRAWAL SYNDROME [None]
